FAERS Safety Report 6640585-8 (Version None)
Quarter: 2010Q1

REPORT INFORMATION
  Report Type: 
  Country: None (occurrence: None)
  Receive Date: 20100318
  Receipt Date: 20100311
  Transmission Date: 20100710
  Serious: Yes (Hospitalization)
  Sender: FDA-Public Use
  Company Number: JP-ASTRAZENECA-2010SE10907

PATIENT
  Age: 80 Year
  Sex: Female

DRUGS (1)
  1. IRESSA [Suspect]
     Dosage: DOSE UNKNOWN
     Route: 048

REACTIONS (1)
  - HERPES ZOSTER [None]
